FAERS Safety Report 23909767 (Version 2)
Quarter: 2024Q2

REPORT INFORMATION
  Report Type: Report from Study
  Country: US (occurrence: US)
  Receive Date: 20240528
  Receipt Date: 20240624
  Transmission Date: 20240716
  Serious: No
  Sender: FDA-Public Use
  Company Number: US-TAIHOP-2024-005271

PATIENT
  Age: 62 Year
  Sex: Male

DRUGS (1)
  1. LONSURF [Suspect]
     Active Substance: TIPIRACIL HYDROCHLORIDE\TRIFLURIDINE
     Indication: Colon cancer
     Dosage: FORM STRENGTH: 15MG AND 20MG.?CURRENT CYCLE UNKNOWN.
     Route: 048
     Dates: start: 202307, end: 20240325

REACTIONS (1)
  - Disease progression [Unknown]
